FAERS Safety Report 22150913 (Version 1)
Quarter: 2023Q1

REPORT INFORMATION
  Report Type: Other
  Country: GB (occurrence: GB)
  Receive Date: 20230329
  Receipt Date: 20230329
  Transmission Date: 20230418
  Serious: Yes (Other)
  Sender: FDA-Public Use
  Company Number: None

PATIENT
  Age: 67 Year
  Sex: Female

DRUGS (6)
  1. MIRABEGRON [Suspect]
     Active Substance: MIRABEGRON
     Indication: Ill-defined disorder
     Dosage: UNK UNK, UNKNOWN FREQ.
     Route: 048
     Dates: start: 20230322
  2. BIMATOPROST [Concomitant]
     Active Substance: BIMATOPROST
     Indication: Ill-defined disorder
     Route: 065
     Dates: start: 20211015
  3. ESTRADIOL [Concomitant]
     Active Substance: ESTRADIOL
     Indication: Ill-defined disorder
     Dosage: UNK UNK, TWICE WEEKLY
     Route: 065
     Dates: start: 20220801
  4. MIRABEGRON [Concomitant]
     Active Substance: MIRABEGRON
     Indication: Ill-defined disorder
     Route: 065
     Dates: start: 20230320
  5. SOLIFENACIN [Concomitant]
     Active Substance: SOLIFENACIN
     Indication: Ill-defined disorder
     Route: 065
     Dates: start: 20220801
  6. SOLIFENACIN [Concomitant]
     Active Substance: SOLIFENACIN
     Indication: Bladder disorder

REACTIONS (1)
  - Malignant hypertension [Recovered/Resolved]

NARRATIVE: CASE EVENT DATE: 20230322
